FAERS Safety Report 12611210 (Version 3)
Quarter: 2017Q1

REPORT INFORMATION
  Report Type: Spontaneous
  Country: TW (occurrence: TW)
  Receive Date: 20160801
  Receipt Date: 20170224
  Transmission Date: 20170428
  Serious: Yes (Hospitalization)
  Sender: FDA-Public Use
  Company Number: TW-ASTELLAS-2016US029347

PATIENT
  Age: 60 Year
  Sex: Male

DRUGS (7)
  1. XTANDI [Suspect]
     Active Substance: ENZALUTAMIDE
     Indication: PROSTATE CANCER
     Route: 048
     Dates: start: 201605, end: 201607
  2. XTANDI [Suspect]
     Active Substance: ENZALUTAMIDE
     Route: 048
     Dates: start: 2016
  3. MEGEST [Concomitant]
     Indication: PRODUCT USED FOR UNKNOWN INDICATION
     Dosage: UNK MG, UNKNOWN FREQ.
     Route: 048
  4. ABIRATERONE [Suspect]
     Active Substance: ABIRATERONE
     Indication: HORMONE-REFRACTORY PROSTATE CANCER
     Route: 048
     Dates: start: 201603, end: 201605
  5. DECONE                             /00016001/ [Concomitant]
     Indication: PROSTATE CANCER
     Dosage: UNK MG, UNKNOWN FREQ.
     Route: 048
     Dates: start: 201603, end: 201605
  6. ABIRATERONE [Suspect]
     Active Substance: ABIRATERONE
     Indication: METASTASES TO BONE
  7. DIMOTIL REPE [Concomitant]
     Indication: DYSPEPSIA
     Dosage: UNK MG, UNKNOWN FREQ.
     Route: 048

REACTIONS (2)
  - Anaemia [Recovered/Resolved]
  - Leukopenia [Recovered/Resolved]

NARRATIVE: CASE EVENT DATE: 201607
